FAERS Safety Report 19920644 (Version 1)
Quarter: 2021Q4

REPORT INFORMATION
  Report Type: Spontaneous
  Country: DE (occurrence: DE)
  Receive Date: 20211005
  Receipt Date: 20211005
  Transmission Date: 20220303
  Serious: Yes (Other)
  Sender: FDA-Public Use
  Company Number: DE-ROCHE-2923975

PATIENT
  Sex: Female

DRUGS (5)
  1. HERCEPTIN [Suspect]
     Active Substance: TRASTUZUMAB
     Indication: Breast cancer metastatic
     Dosage: 8 X COMBINATION OF NAB-PACLITAXEL, HERCEPTIN AND PERJETA
     Route: 065
     Dates: end: 2019
  2. HERCEPTIN [Suspect]
     Active Substance: TRASTUZUMAB
     Dosage: COMBINATION OF HERCEPTIN AND PERJETA FOR TWO YEARS
     Route: 065
     Dates: start: 2019
  3. PERJETA [Suspect]
     Active Substance: PERTUZUMAB
     Indication: Breast cancer metastatic
     Dosage: 8 X COMBINATION OF NAB-PACLITAXEL, HERCEPTIN AND PERJETA
     Route: 065
     Dates: end: 2019
  4. PERJETA [Suspect]
     Active Substance: PERTUZUMAB
     Dosage: COMBINATION OF HERCEPTIN AND PERJETA FOR TWO YEARS
     Route: 065
     Dates: start: 2019
  5. PACLITAXEL [Suspect]
     Active Substance: PACLITAXEL
     Indication: Breast cancer metastatic
     Dosage: 8 X COMBINATION OF NAB-PACLITAXEL, HERCEPTIN AND PERJETA
     Route: 065
     Dates: end: 2019

REACTIONS (6)
  - Metastases to liver [Unknown]
  - Alopecia [Unknown]
  - Palmar-plantar erythrodysaesthesia syndrome [Unknown]
  - Diarrhoea [Unknown]
  - Off label use [Unknown]
  - Intentional product use issue [Unknown]
